FAERS Safety Report 19006861 (Version 5)
Quarter: 2021Q2

REPORT INFORMATION
  Report Type: Report from Study
  Country: None (occurrence: RO)
  Receive Date: 20210315
  Receipt Date: 20210407
  Transmission Date: 20210717
  Serious: Yes (Hospitalization, Disabling)
  Sender: FDA-Public Use
  Company Number: RO-ABBVIE-21K-135-3813583-00

PATIENT
  Age: 69 Year
  Sex: Male

DRUGS (2)
  1. DUODOPA [Suspect]
     Active Substance: CARBIDOPA\LEVODOPA
     Indication: PARKINSON^S DISEASE
     Dosage: DM 8.00, DC 3.00, ED 1.00, NRED 0; DMN 0.00, DCN 0.00, EDN 0.00, NREDN 0.
     Route: 050
     Dates: start: 20180516, end: 202103
  2. DUODOPA [Suspect]
     Active Substance: CARBIDOPA\LEVODOPA
     Dosage: DM=8.00 DC=3.50 ED=1.00 NRED=0, DMN=0.00 DCN=0.00 EDN=0:00?NREDN=0
     Route: 050
     Dates: start: 202103

REACTIONS (1)
  - Gait disturbance [Recovered/Resolved with Sequelae]

NARRATIVE: CASE EVENT DATE: 20210309
